FAERS Safety Report 9806601 (Version 2)
Quarter: 2014Q1

REPORT INFORMATION
  Report Type: Spontaneous
  Country: US (occurrence: US)
  Receive Date: 20140109
  Receipt Date: 20140109
  Transmission Date: 20141002
  Serious: Yes (Hospitalization)
  Sender: FDA-Public Use
  Company Number: US-B.I. PHARMACEUTICALS,INC./RIDGEFIELD-2013-BI-22442BP

PATIENT
  Sex: Male
  Weight: 192.77 kg

DRUGS (12)
  1. PRADAXA [Suspect]
     Indication: ATRIAL FIBRILLATION
     Dates: start: 20120818, end: 20121105
  2. SYNTHROID [Concomitant]
     Dates: start: 2004
  3. VICTOZA [Concomitant]
     Dates: start: 2004
  4. GLIMEPIRIDE [Concomitant]
     Dates: start: 2004
  5. METFORMIN [Concomitant]
     Dates: start: 2004
  6. NOVALOG [Concomitant]
     Dates: start: 2004
  7. LANTUS [Concomitant]
     Dates: start: 2004
  8. FUROSEMIDE [Concomitant]
     Dates: start: 2004
  9. MINOXIDIL [Concomitant]
     Dates: start: 2004
  10. CARVEDILOL [Concomitant]
     Dates: start: 2004
  11. LIPITOR [Concomitant]
     Dates: start: 2004
  12. BENICAR [Concomitant]
     Dates: start: 2004

REACTIONS (3)
  - Gastrointestinal haemorrhage [Unknown]
  - Anaemia [Unknown]
  - Renal failure acute [Unknown]
